FAERS Safety Report 11481751 (Version 8)
Quarter: 2015Q4

REPORT INFORMATION
  Report Type: Spontaneous
  Country: PT (occurrence: PT)
  Receive Date: 20150909
  Receipt Date: 20151216
  Transmission Date: 20160304
  Serious: Yes (Hospitalization, Disabling, Other)
  Sender: FDA-Public Use
  Company Number: PT-ROCHE-1624805

PATIENT
  Age: 50 Year
  Sex: Female
  Weight: 70 kg

DRUGS (10)
  1. HERCEPTIN [Suspect]
     Active Substance: TRASTUZUMAB
     Route: 042
     Dates: start: 20141106, end: 20150710
  2. SERTRALINE [Concomitant]
     Active Substance: SERTRALINE HYDROCHLORIDE
     Indication: DEPRESSION
     Route: 048
  3. PACLITAXEL. [Suspect]
     Active Substance: PACLITAXEL
     Indication: BREAST CANCER METASTATIC
     Dosage: ADJUVANT CT WITH WEEKLY PACLITAXEL X 12 WEEKS
     Route: 065
  4. OMEPRAZOL [Concomitant]
     Active Substance: OMEPRAZOLE
     Indication: DYSPEPSIA
     Route: 048
  5. TRAZODONE [Concomitant]
     Active Substance: TRAZODONE HYDROCHLORIDE
     Indication: DEPRESSION
     Route: 048
  6. HERCEPTIN [Suspect]
     Active Substance: TRASTUZUMAB
     Indication: BREAST CANCER METASTATIC
     Dosage: CYCLE 6, ADJUVANT TRASTUZUMAB X 18 CYCLES
     Route: 042
     Dates: end: 201409
  7. HERCEPTIN [Suspect]
     Active Substance: TRASTUZUMAB
     Dosage: DOSE 6MG/KG
     Route: 042
     Dates: start: 20151113
  8. DOCETAXEL. [Suspect]
     Active Substance: DOCETAXEL
     Indication: BREAST CANCER METASTATIC
     Dosage: CYCLE 6
     Route: 042
     Dates: start: 20141106, end: 20150220
  9. PERJETA [Suspect]
     Active Substance: PERTUZUMAB
     Indication: BREAST CANCER METASTATIC
     Dosage: CYCLE 6
     Route: 042
     Dates: start: 20141218, end: 20150710
  10. PERJETA [Suspect]
     Active Substance: PERTUZUMAB
     Route: 042
     Dates: start: 20151113

REACTIONS (6)
  - Neurotoxicity [Recovered/Resolved with Sequelae]
  - Drug ineffective [Unknown]
  - Left ventricular dysfunction [Recovered/Resolved]
  - Febrile neutropenia [Recovered/Resolved]
  - Cardiac failure [Recovered/Resolved]
  - Disease progression [Unknown]

NARRATIVE: CASE EVENT DATE: 20141225
